FAERS Safety Report 7955198-5 (Version None)
Quarter: 2011Q4

REPORT INFORMATION
  Report Type: 
  Country: None (occurrence: None)
  Receive Date: 20111202
  Receipt Date: 20111128
  Transmission Date: 20120403
  Serious: Yes (Life-Threatening)
  Sender: FDA-Public Use
  Company Number: PHHO2011FR09131

PATIENT
  Sex: Female
  Weight: 48 kg

DRUGS (7)
  1. GLEEVEC [Suspect]
     Indication: PULMONARY ARTERIAL HYPERTENSION
     Dosage: 200 MG, QD
     Dates: start: 20110408, end: 20110526
  2. POLYETHYLENE GLYCOL [Concomitant]
  3. ENOXAPARIN [Suspect]
  4. CORDARONE [Concomitant]
  5. TRACLEER [Concomitant]
  6. REVATIO [Concomitant]
  7. POTASSIUM CHLORIDE [Concomitant]

REACTIONS (1)
  - SUBDURAL HAEMORRHAGE [None]
